FAERS Safety Report 4951628-1 (Version None)
Quarter: 2006Q1

REPORT INFORMATION
  Report Type: 
  Country: None (occurrence: None)
  Receive Date: 20060317
  Receipt Date: 20060307
  Transmission Date: 20060701
  Serious: Yes (Hospitalization, Other)
  Sender: FDA-Public Use
  Company Number: 2006033707

PATIENT
  Sex: Female
  Weight: 80.7403 kg

DRUGS (5)
  1. NORVASC [Suspect]
     Indication: BLOOD PRESSURE
     Dosage: 10 MG (10 MG, 1 IN 24 HR)
     Dates: start: 19860101
  2. LIPITOR [Concomitant]
  3. DIGOXIN [Concomitant]
  4. LEXAPRO [Concomitant]
  5. THYROID TAB [Concomitant]

REACTIONS (7)
  - BODY HEIGHT DECREASED [None]
  - HYPERHIDROSIS [None]
  - MYOCARDIAL INFARCTION [None]
  - OEDEMA PERIPHERAL [None]
  - POOR PERIPHERAL CIRCULATION [None]
  - POST PROCEDURAL COMPLICATION [None]
  - TRIPLE VESSEL BYPASS GRAFT [None]
